FAERS Safety Report 6678138-8 (Version None)
Quarter: 2010Q2

REPORT INFORMATION
  Report Type: 
  Country: None (occurrence: None)
  Receive Date: 20100409
  Receipt Date: 20100409
  Transmission Date: 20101027
  Serious: Yes (Hospitalization)
  Sender: FDA-Public Use
  Company Number: None

PATIENT
  Sex: Male

DRUGS (9)
  1. ORAL CLOFARABINE, 1 MG, GENZYME CORP. [Suspect]
     Indication: MYELODYSPLASTIC SYNDROME
     Dosage: 1MQ Q10D PO; 1 MG Q7D PO
     Route: 048
     Dates: start: 20090416, end: 20090425
  2. ORAL CLOFARABINE, 1 MG, GENZYME CORP. [Suspect]
     Indication: MYELODYSPLASTIC SYNDROME
     Dosage: 1MQ Q10D PO; 1 MG Q7D PO
     Route: 048
     Dates: start: 20090514
  3. ARANESP [Concomitant]
  4. ZOSYN [Concomitant]
  5. NEXIUM [Concomitant]
  6. ENOXAPERIN [Concomitant]
  7. TYLENOL-500 [Concomitant]
  8. FENTANYL [Concomitant]
  9. ONDANSETRON [Concomitant]

REACTIONS (7)
  - ABDOMINAL PAIN [None]
  - CHOLECYSTITIS [None]
  - CHOLELITHIASIS [None]
  - PERICARDITIS [None]
  - PLATELET COUNT DECREASED [None]
  - PYREXIA [None]
  - VOMITING [None]
